FAERS Safety Report 8139067-6 (Version None)
Quarter: 2012Q1

REPORT INFORMATION
  Report Type: 
  Country: None (occurrence: None)
  Receive Date: 20120215
  Receipt Date: 20120213
  Transmission Date: 20120608
  Serious: Yes (Other)
  Sender: FDA-Public Use
  Company Number: US-PFIZER INC-2012038799

PATIENT
  Sex: Male
  Weight: 70 kg

DRUGS (6)
  1. CHANTIX [Suspect]
     Indication: SMOKING CESSATION THERAPY
     Dosage: 0.5 MG, 1X/DAY
     Route: 048
     Dates: start: 20120101, end: 20120101
  2. ZOLOFT [Suspect]
     Indication: DEPRESSION
     Dosage: 100 MG, 1X/DAY
     Route: 048
  3. CHANTIX [Suspect]
     Dosage: 1 MG, 2X/DAY
     Route: 048
     Dates: start: 20120101, end: 20120101
  4. VICODIN [Suspect]
     Indication: BACK PAIN
     Dosage: UNK, 2X/DAY
     Route: 048
     Dates: start: 20100301
  5. VIAGRA [Suspect]
     Indication: ERECTILE DYSFUNCTION
     Dosage: 100 MG, AS NEEDED
     Route: 048
     Dates: start: 20110301
  6. NEURONTIN [Suspect]
     Indication: DEPRESSION
     Dosage: 600 MG, 2X/DAY
     Route: 048
     Dates: start: 20090101

REACTIONS (4)
  - NIGHTMARE [None]
  - IMMUNODEFICIENCY [None]
  - SEXUALLY INAPPROPRIATE BEHAVIOUR [None]
  - HYPERSOMNIA [None]
